FAERS Safety Report 13685169 (Version 1)
Quarter: 2017Q2

REPORT INFORMATION
  Report Type: Spontaneous
  Country: US (occurrence: US)
  Receive Date: 20170623
  Receipt Date: 20170623
  Transmission Date: 20170830
  Serious: No
  Sender: FDA-Public Use
  Company Number: US-INTERPRAG-PM-OCA2017-00350

PATIENT

DRUGS (12)
  1. OCALIVA [Suspect]
     Active Substance: OBETICHOLIC ACID
     Indication: BILIARY CIRRHOSIS
     Dosage: 5 MG, UNK
     Route: 048
     Dates: start: 20170324
  2. TYLENOL [Concomitant]
     Active Substance: ACETAMINOPHEN
  3. B COMPLEX                          /00322001/ [Concomitant]
     Active Substance: CALCIUM PANTOTHENATE\CYANOCOBALAMIN\NIACINAMIDE\PYRIDOXINE HYDROCHLORIDE\RIBOFLAVIN\THIAMINE HYDROCHLORIDE
  4. CALCIUM [Concomitant]
     Active Substance: CALCIUM
  5. OMEPRAZOLE. [Concomitant]
     Active Substance: OMEPRAZOLE
  6. VITAMIN C [Concomitant]
     Active Substance: ASCORBIC ACID
  7. GABAPENTIN. [Concomitant]
     Active Substance: GABAPENTIN
  8. PRESERVISION [Concomitant]
     Active Substance: MINERALS\VITAMINS
  9. TRAMADOL. [Concomitant]
     Active Substance: TRAMADOL
  10. ASPIRIN                            /00002701/ [Concomitant]
     Active Substance: ASPIRIN
  11. FLUOXETINE [Concomitant]
     Active Substance: FLUOXETINE HYDROCHLORIDE
  12. LEVOTHYROXIN [Concomitant]
     Active Substance: LEVOTHYROXINE

REACTIONS (2)
  - Back pain [Unknown]
  - Drug dose omission [Recovered/Resolved]
